FAERS Safety Report 5243200-3 (Version None)
Quarter: 2007Q1

REPORT INFORMATION
  Report Type: 
  Country: None (occurrence: None)
  Receive Date: 20070215
  Receipt Date: 20070130
  Transmission Date: 20070707
  Serious: Yes (Other)
  Sender: FDA-Public Use
  Company Number: DSA_61221_2006

PATIENT
  Age: 15 Year
  Sex: Male

DRUGS (2)
  1. DIHYDERGOT [Suspect]
     Indication: INCORRECT DOSE ADMINISTERED
     Dosage: DF UNK PO
     Route: 048
     Dates: start: 20060901
  2. . [Concomitant]

REACTIONS (3)
  - HALLUCINATION [None]
  - OVERDOSE [None]
  - SELF-MEDICATION [None]
